FAERS Safety Report 5822366-8 (Version None)
Quarter: 2008Q3

REPORT INFORMATION
  Report Type: 
  Country: None (occurrence: None)
  Receive Date: 20080722
  Receipt Date: 20080710
  Transmission Date: 20090109
  Serious: Yes (Other)
  Sender: FDA-Public Use
  Company Number: 2008JP003127

PATIENT
  Age: 67 Year
  Sex: Male

DRUGS (6)
  1. VESICARE [Suspect]
     Indication: HYPERTONIC BLADDER
     Dosage: 5 MG, D, ORAL, 2.5 MG, D, ORAL
     Route: 048
     Dates: start: 20080520, end: 20080616
  2. VESICARE [Suspect]
     Indication: HYPERTONIC BLADDER
     Dosage: 5 MG, D, ORAL, 2.5 MG, D, ORAL
     Route: 048
     Dates: start: 20080617, end: 20080618
  3. GLYCRRHIZA EXTRACT(GLYCYRRHIZA GLABRA EXTRACT) PER ORAL NOS [Suspect]
     Dosage: ORAL
     Route: 048
     Dates: end: 20080701
  4. ASPIRIN [Concomitant]
  5. AMLODIPINE [Concomitant]
  6. ALLOPURINOL [Concomitant]

REACTIONS (7)
  - ALANINE AMINOTRANSFERASE INCREASED [None]
  - ASPARTATE AMINOTRANSFERASE INCREASED [None]
  - BLOOD CHLORIDE DECREASED [None]
  - BLOOD CREATINE PHOSPHOKINASE INCREASED [None]
  - BLOOD LACTATE DEHYDROGENASE INCREASED [None]
  - BLOOD POTASSIUM DECREASED [None]
  - SENSATION OF HEAVINESS [None]
